FAERS Safety Report 15308794 (Version 1)
Quarter: 2018Q3

REPORT INFORMATION
  Report Type: Report from Study
  Country: AU (occurrence: AU)
  Receive Date: 20180822
  Receipt Date: 20180822
  Transmission Date: 20181010
  Serious: Yes (Other)
  Sender: FDA-Public Use
  Company Number: AU-REGENERON PHARMACEUTICALS, INC.-2018-25416

PATIENT

DRUGS (3)
  1. EYLEA [Suspect]
     Active Substance: AFLIBERCEPT
     Indication: DIABETIC RETINAL OEDEMA
     Dosage: INJECTION TO LEFT EYE), MONTHLY
     Route: 031
     Dates: start: 20180209
  2. EYLEA [Suspect]
     Active Substance: AFLIBERCEPT
     Dosage: EVERY 3 MONTHS
     Route: 031
     Dates: start: 20180515
  3. EYLEA [Suspect]
     Active Substance: AFLIBERCEPT
     Dosage: UNK( INJECTION TO LEFT EYE)
     Route: 031
     Dates: start: 20180515

REACTIONS (7)
  - Visual impairment [Recovered/Resolved]
  - Eye haemorrhage [Recovered/Resolved]
  - Eye swelling [Recovering/Resolving]
  - Vitreous floaters [Recovered/Resolved]
  - Injection site irritation [Unknown]
  - Intraocular pressure increased [Recovered/Resolved]
  - Vision blurred [Unknown]

NARRATIVE: CASE EVENT DATE: 20180515
